FAERS Safety Report 19282687 (Version 2)
Quarter: 2021Q2

REPORT INFORMATION
  Report Type: Report from Study
  Country: US (occurrence: US)
  Receive Date: 20210521
  Receipt Date: 20210615
  Transmission Date: 20210717
  Serious: Yes (Hospitalization)
  Sender: FDA-Public Use
  Company Number: US-INSMED, INC.-2021-07803-US

PATIENT
  Sex: Female

DRUGS (2)
  1. OXYGEN. [Concomitant]
     Active Substance: OXYGEN
     Indication: PRODUCT USED FOR UNKNOWN INDICATION
  2. ARIKAYCE [Suspect]
     Active Substance: AMIKACIN
     Indication: MYCOBACTERIUM AVIUM COMPLEX INFECTION
     Dosage: 590 MILLIGRAM, ONCE DAILY
     Route: 055
     Dates: start: 20210203

REACTIONS (6)
  - Product dose omission issue [Unknown]
  - Device use error [Unknown]
  - Therapy interrupted [Unknown]
  - Hospitalisation [Unknown]
  - Incorrect dose administered [Unknown]
  - Drug dose omission by device [Unknown]
